FAERS Safety Report 13381349 (Version 1)
Quarter: 2017Q1

REPORT INFORMATION
  Report Type: Spontaneous
  Country: US (occurrence: US)
  Receive Date: 20170329
  Receipt Date: 20170329
  Transmission Date: 20170429
  Serious: No
  Sender: FDA-Public Use
  Company Number: US-AMGEN-USASP2017044286

PATIENT
  Age: 36 Year
  Sex: Female

DRUGS (2)
  1. ENBREL [Suspect]
     Active Substance: ETANERCEPT
     Indication: RHEUMATOID ARTHRITIS
     Dosage: 50 MG, QWK
     Route: 065
     Dates: start: 201612
  2. RESTIVA [Concomitant]
     Active Substance: BUPRENORPHINE
     Indication: HLA-B*27 POSITIVE
     Dosage: UNK

REACTIONS (2)
  - Injection site pain [Unknown]
  - Fear of injection [Unknown]
